FAERS Safety Report 9176761 (Version 1)
Quarter: 2013Q1

REPORT INFORMATION
  Report Type: Spontaneous
  Country: IT (occurrence: IT)
  Receive Date: 20130321
  Receipt Date: 20130321
  Transmission Date: 20140127
  Serious: Yes (Hospitalization)
  Sender: FDA-Public Use
  Company Number: PHHY2013IT026213

PATIENT
  Sex: Female

DRUGS (9)
  1. COTAREG [Suspect]
     Indication: HYPERTENSION
     Dosage: 1 DF (UNKNOWN MG VALS AND 12.5 MG HCTZ), DAILY
     Route: 048
     Dates: start: 20110201, end: 20130206
  2. BIFRIL [Interacting]
     Indication: HYPERTENSION
     Dosage: 30 MG, DAILY
     Route: 048
     Dates: start: 20100101
  3. CRESTOR [Concomitant]
  4. DELTACORTENE [Concomitant]
  5. ARANESP [Concomitant]
  6. NORMIX [Concomitant]
  7. ADRONAT [Concomitant]
  8. FERRO-GRAD [Concomitant]
     Dosage: 105 MG, UNK
  9. ZOTON [Concomitant]

REACTIONS (3)
  - Bone marrow failure [Recovered/Resolved]
  - Anaemia [Recovered/Resolved]
  - Drug interaction [Recovered/Resolved]
